FAERS Safety Report 4932013-5 (Version None)
Quarter: 2006Q1

REPORT INFORMATION
  Report Type: 
  Country: None (occurrence: None)
  Receive Date: 20060303
  Receipt Date: 20060222
  Transmission Date: 20060701
  Serious: Yes (Hospitalization)
  Sender: FDA-Public Use
  Company Number: US-GLAXOSMITHKLINE-B0414063A

PATIENT
  Age: 62 Year
  Sex: Female

DRUGS (4)
  1. TOPOTECAN [Suspect]
     Indication: CHEMOTHERAPY
     Route: 065
  2. PACLITAXEL [Suspect]
     Indication: CHEMOTHERAPY
     Route: 065
  3. CARBOPLATIN [Suspect]
     Indication: CHEMOTHERAPY
     Route: 065
  4. ALTRETAMINE [Suspect]
     Indication: CHEMOTHERAPY
     Route: 065

REACTIONS (13)
  - ABDOMINAL DISTENSION [None]
  - ABDOMINAL PAIN [None]
  - ANOREXIA [None]
  - BLOOD CALCIUM DECREASED [None]
  - BLOOD LACTATE DEHYDROGENASE INCREASED [None]
  - BLOOD PHOSPHORUS INCREASED [None]
  - BLOOD POTASSIUM INCREASED [None]
  - BLOOD URIC ACID INCREASED [None]
  - DISEASE PROGRESSION [None]
  - ELECTROLYTE IMBALANCE [None]
  - INTESTINAL OBSTRUCTION [None]
  - NAUSEA [None]
  - TUMOUR LYSIS SYNDROME [None]
